FAERS Safety Report 7587494-8 (Version None)
Quarter: 2011Q3

REPORT INFORMATION
  Report Type: 
  Country: None (occurrence: None)
  Receive Date: 20110704
  Receipt Date: 20110620
  Transmission Date: 20111222
  Serious: Yes (Other)
  Sender: FDA-Public Use
  Company Number: BR-RANBAXY-2011R5-45527

PATIENT

DRUGS (1)
  1. CEFUROXIME AXETIL [Suspect]
     Indication: PNEUMONIA
     Dosage: 500 MG, BID
     Route: 048
     Dates: start: 20110616, end: 20110616

REACTIONS (6)
  - VOMITING [None]
  - DYSENTERY [None]
  - DIZZINESS [None]
  - LIP SWELLING [None]
  - SYNCOPE [None]
  - HYPOAESTHESIA ORAL [None]
